FAERS Safety Report 4564420-7 (Version None)
Quarter: 2005Q1

REPORT INFORMATION
  Report Type: 
  Country: None (occurrence: None)
  Receive Date: 20050128
  Receipt Date: 20040310
  Transmission Date: 20050727
  Serious: No
  Sender: FDA-Public Use
  Company Number: US-GLAXOSMITHKLINE-A0502188A

PATIENT
  Sex: Male

DRUGS (2)
  1. EPIVIR-HBV [Suspect]
     Indication: ILL-DEFINED DISORDER
     Dosage: 100MG UNKNOWN
     Route: 048
     Dates: start: 19990101
  2. HEPSERA [Concomitant]

REACTIONS (5)
  - BACK PAIN [None]
  - DRUG RESISTANCE [None]
  - HYPOAESTHESIA [None]
  - MUSCLE TIGHTNESS [None]
  - PARAESTHESIA [None]
